FAERS Safety Report 9909664 (Version 3)
Quarter: 2014Q2

REPORT INFORMATION
  Report Type: Spontaneous
  Country: DE (occurrence: DE)
  Receive Date: 20140219
  Receipt Date: 20140414
  Transmission Date: 20141212
  Serious: Yes (Life-Threatening, Hospitalization)
  Sender: FDA-Public Use
  Company Number: DE-VIIV HEALTHCARE LIMITED-D0082892A

PATIENT
  Age: 61 Year
  Sex: Male
  Weight: 180 kg

DRUGS (4)
  1. TIVICAY [Suspect]
     Indication: HIV INFECTION
     Dosage: 50MG PER DAY
     Route: 048
     Dates: start: 20140130
  2. TRUVADA [Suspect]
     Indication: HIV INFECTION
     Dosage: 445MG PER DAY
     Route: 048
     Dates: start: 20140130
  3. PREZISTA [Concomitant]
     Indication: HIV INFECTION
     Dosage: 600MG PER DAY
     Route: 048
     Dates: start: 20140130
  4. NORVIR [Concomitant]
     Indication: HIV INFECTION
     Dosage: 100MG PER DAY
     Route: 048
     Dates: start: 20140130

REACTIONS (2)
  - Renal tubular necrosis [Not Recovered/Not Resolved]
  - Renal failure acute [Unknown]
